FAERS Safety Report 8230899-2 (Version None)
Quarter: 2012Q1

REPORT INFORMATION
  Report Type: 
  Country: None (occurrence: None)
  Receive Date: 20120323
  Receipt Date: 20120319
  Transmission Date: 20120608
  Serious: Yes (Life-Threatening)
  Sender: FDA-Public Use
  Company Number: JP-GENZYME-THYM-1002893

PATIENT
  Sex: Female
  Weight: 40 kg

DRUGS (19)
  1. THYMOGLOBULIN [Suspect]
     Indication: ACUTE GRAFT VERSUS HOST DISEASE
     Dosage: 40 MG, QD
     Route: 042
     Dates: start: 20110323, end: 20110323
  2. CORTICOSTEROIDS [Concomitant]
     Indication: ACUTE GRAFT VERSUS HOST DISEASE
     Dosage: UNK
     Route: 065
     Dates: start: 20110316
  3. METHYLPREDNISOLONE SODIUM SUCCINATE [Concomitant]
     Indication: PREMEDICATION
     Dosage: UNK
     Route: 065
     Dates: start: 20110323, end: 20110323
  4. CEFEPIME HYDROCHLORIDE [Concomitant]
     Indication: INFECTION PROPHYLAXIS
     Dosage: UNK
     Route: 065
     Dates: start: 20110429, end: 20110627
  5. FOSCARNET SODIUM [Concomitant]
     Indication: CYTOMEGALOVIRUS ENTEROCOLITIS
     Dosage: UNK
     Route: 065
     Dates: start: 20110511, end: 20110526
  6. RITUXIMAB [Concomitant]
     Indication: COLD TYPE HAEMOLYTIC ANAEMIA
     Dosage: UNK
     Route: 065
     Dates: start: 20110324, end: 20110324
  7. ACYCLOVIR [Concomitant]
     Indication: INFECTION PROPHYLAXIS
     Dosage: UNK
     Route: 065
     Dates: start: 20110622, end: 20110707
  8. FILGRASTIM [Concomitant]
     Indication: PROPHYLAXIS
     Dosage: UNK
     Route: 065
     Dates: start: 20110625, end: 20110707
  9. TEICOPLANIN [Concomitant]
     Indication: SEPSIS
     Dosage: UNK
     Route: 065
     Dates: start: 20110323, end: 20110703
  10. GANCICLOVIR [Concomitant]
     Indication: CYTOMEGALOVIRUS ENTEROCOLITIS
     Dosage: UNK
     Route: 065
     Dates: start: 20110330, end: 20110510
  11. PREDNISOLONE [Concomitant]
     Indication: GRAFT VERSUS HOST DISEASE
     Dosage: UNK
     Route: 065
     Dates: start: 20110420, end: 20110708
  12. HYDROCORTISONE SODIUM SUCCINATE [Concomitant]
     Indication: INFECTION PROPHYLAXIS
     Dosage: UNK
     Route: 065
     Dates: start: 20110623, end: 20110708
  13. CYCLOSPORINE [Concomitant]
     Indication: BONE MARROW CONDITIONING REGIMEN
     Dosage: UNK
     Route: 065
     Dates: start: 20100119
  14. MICAFUNGIN SODIUM [Concomitant]
     Indication: SEPSIS
     Dosage: UNK
     Route: 065
     Dates: start: 20110323, end: 20110708
  15. METHYLPREDNISOLONE SODIUM SUCCINATE [Concomitant]
     Indication: GRAFT VERSUS HOST DISEASE
     Dosage: UNK
     Route: 065
     Dates: start: 20110323, end: 20110419
  16. VANCOMYCIN HYDROCHLORIDE [Concomitant]
     Indication: INFECTION PROPHYLAXIS
     Dosage: UNK
     Route: 065
     Dates: start: 20110703, end: 20110707
  17. PIPERACILLIN W [Concomitant]
     Indication: INFECTION PROPHYLAXIS
     Dosage: UNK
     Route: 065
     Dates: start: 20110703, end: 20110707
  18. OMEPRAZOLE [Concomitant]
     Indication: GASTRITIS PROPHYLAXIS
     Dosage: UNK
     Route: 065
     Dates: start: 20110323, end: 20110331
  19. SULPERAZONE [Concomitant]
     Indication: INFECTION PROPHYLAXIS
     Dosage: UNK
     Route: 065
     Dates: start: 20110323, end: 20110708

REACTIONS (2)
  - LEUKAEMIC INFILTRATION BRAIN [None]
  - PYREXIA [None]
